FAERS Safety Report 9189393 (Version 1)
Quarter: 2013Q1

REPORT INFORMATION
  Report Type: Spontaneous
  Country: US (occurrence: None)
  Receive Date: 20130322
  Receipt Date: 20130322
  Transmission Date: 20140127
  Serious: Yes (Other)
  Sender: FDA-Public Use
  Company Number: None

PATIENT
  Age: 86 Year
  Sex: Female
  Weight: 79 kg

DRUGS (1)
  1. XARELTO [Suspect]
     Indication: DEEP VEIN THROMBOSIS
     Dosage: 15MG BID PO
     Route: 048
     Dates: start: 20130317, end: 20130319

REACTIONS (9)
  - Haemoglobin decreased [None]
  - Haematocrit decreased [None]
  - Prothrombin time prolonged [None]
  - International normalised ratio increased [None]
  - Activated partial thromboplastin time prolonged [None]
  - Blood alkaline phosphatase increased [None]
  - Alanine aminotransferase increased [None]
  - Aspartate aminotransferase increased [None]
  - Blood uric acid increased [None]
